FAERS Safety Report 13028619 (Version 1)
Quarter: 2016Q4

REPORT INFORMATION
  Report Type: Spontaneous
  Country: CO (occurrence: CO)
  Receive Date: 20161214
  Receipt Date: 20161214
  Transmission Date: 20170207
  Serious: Yes (Hospitalization, Other)
  Sender: FDA-Public Use
  Company Number: CO-BIOMARINAP-CO-2016-110956

PATIENT
  Age: 8 Year
  Sex: Male
  Weight: 18 kg

DRUGS (1)
  1. ALDURAZYME [Suspect]
     Active Substance: LARONIDASE
     Indication: MUCOPOLYSACCHARIDOSIS
     Dosage: 2000 IU, QW
     Route: 041
     Dates: start: 2009

REACTIONS (2)
  - Respiratory distress [Recovered/Resolved]
  - Croup infectious [Recovered/Resolved]

NARRATIVE: CASE EVENT DATE: 20160117
